FAERS Safety Report 24579777 (Version 1)
Quarter: 2024Q4

REPORT INFORMATION
  Report Type: Spontaneous
  Country: CN (occurrence: CN)
  Receive Date: 20241105
  Receipt Date: 20241105
  Transmission Date: 20250114
  Serious: Yes (Hospitalization, Other)
  Sender: RANBAXY
  Company Number: CN-SUN PHARMACEUTICAL INDUSTRIES LTD-2024R1-476327

PATIENT
  Age: 67 Year
  Sex: Male

DRUGS (1)
  1. DECITABINE [Suspect]
     Active Substance: DECITABINE
     Indication: Chronic myeloid leukaemia
     Dosage: 25 MILLIGRAM/KILOGRAM, DAILY
     Route: 042

REACTIONS (2)
  - Disease progression [Unknown]
  - Drug resistance [Unknown]
